FAERS Safety Report 20069006 (Version 2)
Quarter: 2021Q4

REPORT INFORMATION
  Report Type: Spontaneous
  Country: US (occurrence: US)
  Receive Date: 20211115
  Receipt Date: 20211118
  Transmission Date: 20220303
  Serious: Yes (Other)
  Sender: FDA-Public Use
  Company Number: US-PFIZER INC-202101540452

PATIENT
  Age: 54 Year
  Sex: Male

DRUGS (1)
  1. METHOTREXATE SODIUM [Suspect]
     Active Substance: METHOTREXATE SODIUM
     Indication: Diffuse large B-cell lymphoma
     Dosage: 7.2 G, SINGLE (HDMTX)
     Route: 042

REACTIONS (3)
  - Hyponatraemia [Recovering/Resolving]
  - Cerebral salt-wasting syndrome [Unknown]
  - Neurotoxicity [Unknown]
